FAERS Safety Report 8433660-9 (Version None)
Quarter: 2012Q2

REPORT INFORMATION
  Report Type: 
  Country: None (occurrence: None)
  Receive Date: 20120613
  Receipt Date: 20120605
  Transmission Date: 20120825
  Serious: Yes (Life-Threatening, Other)
  Sender: FDA-Public Use
  Company Number: US-ROXANE LABORATORIES, INC.-2012-RO-01362RO

PATIENT
  Age: 30 Year
  Sex: Male

DRUGS (10)
  1. MIDAZOLAM [Suspect]
     Indication: INDUCTION OF ANAESTHESIA
  2. SERTRALINE HYDROCHLORIDE [Suspect]
     Indication: POST-TRAUMATIC STRESS DISORDER
     Dosage: 100 MG
  3. SERTRALINE HYDROCHLORIDE [Suspect]
     Indication: DEPRESSION
  4. SEVOFLURANE [Suspect]
     Indication: MAINTENANCE OF ANAESTHESIA
  5. SUCCINYLCHOLINE CHLORIDE [Suspect]
     Indication: INDUCTION OF ANAESTHESIA
  6. HYDROCODONE BITARTRATE + ACETAMINOPHEN [Suspect]
     Indication: FACIAL BONES FRACTURE
  7. LIDOCAINE [Suspect]
     Indication: INDUCTION OF ANAESTHESIA
  8. FENTANYL [Suspect]
     Indication: INDUCTION OF ANAESTHESIA
  9. CYCLOBENZAPRINE [Suspect]
     Indication: MUSCLE SPASMS
     Dosage: 30 MG
  10. PROPOFOL [Suspect]
     Indication: INDUCTION OF ANAESTHESIA

REACTIONS (7)
  - VENTRICULAR FIBRILLATION [None]
  - STRESS CARDIOMYOPATHY [None]
  - CARDIAC OUTPUT DECREASED [None]
  - VENTRICULAR EXTRASYSTOLES [None]
  - EXTRASYSTOLES [None]
  - MITRAL VALVE INCOMPETENCE [None]
  - VENTRICULAR TACHYCARDIA [None]
